FAERS Safety Report 9321628 (Version 18)
Quarter: 2019Q4

REPORT INFORMATION
  Report Type: Report from Study
  Country: BR (occurrence: BR)
  Receive Date: 20130531
  Receipt Date: 20191014
  Transmission Date: 20200122
  Serious: Yes (Life-Threatening, Hospitalization, Other)
  Sender: FDA-Public Use
  Company Number: BR-ROCHE-1229776

PATIENT
  Age: 46 Year
  Sex: Female
  Weight: 60 kg

DRUGS (25)
  1. XOLAIR [Suspect]
     Active Substance: OMALIZUMAB
     Route: 058
     Dates: start: 20071023
  2. XOLAIR [Suspect]
     Active Substance: OMALIZUMAB
     Route: 058
     Dates: start: 20131103
  3. SYMBICORT [Suspect]
     Active Substance: BUDESONIDE\FORMOTEROL FUMARATE DIHYDRATE
     Indication: PRODUCT USED FOR UNKNOWN INDICATION
     Route: 055
  4. ATROVENT [Suspect]
     Active Substance: IPRATROPIUM BROMIDE
     Indication: PRODUCT USED FOR UNKNOWN INDICATION
     Dosage: 15 TO 20 DROPS, STARTED 7 TO 8 YEARS
     Route: 065
  5. CEFALIV [Concomitant]
     Dosage: UNK UKN, UNK
     Route: 065
  6. RELVAR [Concomitant]
     Active Substance: FLUTICASONE FUROATE\VILANTEROL TRIFENATATE
     Indication: PRODUCT USED FOR UNKNOWN INDICATION
     Route: 065
  7. FLIXOTIDE [Concomitant]
     Active Substance: FLUTICASONE PROPIONATE
     Indication: PRODUCT USED FOR UNKNOWN INDICATION
     Route: 065
  8. XOLAIR [Suspect]
     Active Substance: OMALIZUMAB
     Route: 058
     Dates: start: 20131108
  9. XOLAIR [Suspect]
     Active Substance: OMALIZUMAB
     Route: 058
     Dates: start: 201306
  10. CLONAZEPAM. [Concomitant]
     Active Substance: CLONAZEPAM
     Indication: SOMNOLENCE
     Dosage: 1 DF, EVERY NIGHT
     Route: 048
     Dates: start: 20130630
  11. XOLAIR [Suspect]
     Active Substance: OMALIZUMAB
     Route: 058
     Dates: start: 20130723
  12. XOLAIR [Suspect]
     Active Substance: OMALIZUMAB
     Dosage: 2 AMPOULE PER MONTH
     Route: 058
     Dates: start: 20150504
  13. CLENIL A [Concomitant]
     Active Substance: BECLOMETHASONE DIPROPIONATE
     Indication: PRODUCT USED FOR UNKNOWN INDICATION
     Route: 065
  14. AMINOPHILLINE [Suspect]
     Active Substance: AMINOPHYLLINE
     Indication: PRODUCT USED FOR UNKNOWN INDICATION
     Dosage: UNK
     Route: 065
  15. SPIRIVA [Concomitant]
     Active Substance: TIOTROPIUM BROMIDE MONOHYDRATE
     Indication: PRODUCT USED FOR UNKNOWN INDICATION
     Route: 065
  16. SERETIDE [Concomitant]
     Active Substance: FLUTICASONE PROPIONATE\SALMETEROL XINAFOATE
     Indication: ASTHMA
     Dosage: 50/250 MG?1 IN THE MORNING 1 AT NIGHT
     Route: 065
  17. XOLAIR [Suspect]
     Active Substance: OMALIZUMAB
     Indication: ASTHMA
     Dosage: 2 AMPOULE PER MONTH
     Route: 058
     Dates: start: 2003, end: 2007
  18. XOLAIR [Suspect]
     Active Substance: OMALIZUMAB
     Route: 058
     Dates: start: 20130621
  19. ALENIA [BUDESONIDE;FORMOTEROL FUMARATE] [Suspect]
     Active Substance: BUDESONIDE\FORMOTEROL FUMARATE
     Indication: PRODUCT USED FOR UNKNOWN INDICATION
     Route: 065
  20. HYDROCORTISONE. [Suspect]
     Active Substance: HYDROCORTISONE
     Indication: PRODUCT USED FOR UNKNOWN INDICATION
     Dosage: UNK
     Route: 065
  21. BUSONID [Concomitant]
     Active Substance: BUDESONIDE
     Indication: PRODUCT USED FOR UNKNOWN INDICATION
     Route: 065
  22. XOLAIR [Suspect]
     Active Substance: OMALIZUMAB
     Route: 058
     Dates: start: 2005
  23. XOLAIR [Suspect]
     Active Substance: OMALIZUMAB
     Dosage: 2 AMPOULE PER MONTH
     Route: 058
     Dates: start: 2004, end: 2007
  24. BEROTEC [Suspect]
     Active Substance: FENOTEROL HYDROBROMIDE
     Indication: ASTHMA
     Route: 065
  25. SALINE [SODIUM CHLORIDE] [Concomitant]
     Active Substance: SODIUM CHLORIDE
     Dosage: 5 ML, UNK
     Route: 065

REACTIONS (51)
  - Deafness [Unknown]
  - Weight decreased [Not Recovered/Not Resolved]
  - Skin burning sensation [Not Recovered/Not Resolved]
  - Gait disturbance [Not Recovered/Not Resolved]
  - Speech disorder [Recovered/Resolved]
  - Dyspnoea [Not Recovered/Not Resolved]
  - Malaise [Not Recovered/Not Resolved]
  - Drug ineffective [Unknown]
  - Pulmonary pain [Unknown]
  - Disability [Not Recovered/Not Resolved]
  - Dysphonia [Not Recovered/Not Resolved]
  - Blood immunoglobulin E increased [Not Recovered/Not Resolved]
  - Metrorrhagia [Not Recovered/Not Resolved]
  - Visual impairment [Not Recovered/Not Resolved]
  - Immunodeficiency [Not Recovered/Not Resolved]
  - Blindness [Not Recovered/Not Resolved]
  - Rhinorrhoea [Not Recovered/Not Resolved]
  - Product administration error [Not Recovered/Not Resolved]
  - Catarrh [Not Recovered/Not Resolved]
  - Feeling abnormal [Not Recovered/Not Resolved]
  - Pleural effusion [Recovered/Resolved]
  - Hypoacusis [Not Recovered/Not Resolved]
  - Headache [Unknown]
  - Bronchospasm [Unknown]
  - Haematoma [Unknown]
  - Coma [Recovered/Resolved]
  - Fatigue [Not Recovered/Not Resolved]
  - Myocardial infarction [Unknown]
  - Tremor [Unknown]
  - Cardiac arrest [Not Recovered/Not Resolved]
  - Contusion [Unknown]
  - Pneumonia [Recovered/Resolved]
  - Haemorrhage [Recovered/Resolved]
  - Sedation [Not Recovered/Not Resolved]
  - Migraine [Not Recovered/Not Resolved]
  - Chest pain [Not Recovered/Not Resolved]
  - Sleep disorder [Unknown]
  - Drug dependence [Unknown]
  - Chronic sinusitis [Unknown]
  - Glaucoma [Not Recovered/Not Resolved]
  - Influenza [Not Recovered/Not Resolved]
  - Wheezing [Not Recovered/Not Resolved]
  - Rickets [Not Recovered/Not Resolved]
  - Asthma [Not Recovered/Not Resolved]
  - Depressed mood [Not Recovered/Not Resolved]
  - Anaemia [Not Recovered/Not Resolved]
  - Breast pain [Not Recovered/Not Resolved]
  - General physical health deterioration [Not Recovered/Not Resolved]
  - Lung disorder [Not Recovered/Not Resolved]
  - Therapeutic product ineffective [Unknown]
  - Micturition disorder [Not Recovered/Not Resolved]

NARRATIVE: CASE EVENT DATE: 20190828
